FAERS Safety Report 17288033 (Version 1)
Quarter: 2020Q1

REPORT INFORMATION
  Report Type: Spontaneous
  Country: JP (occurrence: JP)
  Receive Date: 20200120
  Receipt Date: 20200120
  Transmission Date: 20200409
  Serious: Yes (Other)
  Sender: FDA-Public Use
  Company Number: JP-ROCHE-2526130

PATIENT
  Age: 85 Year
  Sex: Female

DRUGS (1)
  1. BONVIVA [Suspect]
     Active Substance: IBANDRONATE SODIUM
     Indication: OSTEOPOROSIS PROPHYLAXIS
     Dosage: 1 MILLIGRAM, INJECTION
     Route: 042

REACTIONS (3)
  - Intentional product use issue [Unknown]
  - Osteomyelitis [Unknown]
  - Off label use [Unknown]
